FAERS Safety Report 20896327 (Version 1)
Quarter: 2022Q2

REPORT INFORMATION
  Report Type: Spontaneous
  Country: US (occurrence: None)
  Receive Date: 20220530
  Receipt Date: 20220530
  Transmission Date: 20220721
  Serious: No
  Sender: FDA-Public Use
  Company Number: None

PATIENT
  Age: 36 Year
  Sex: Female

DRUGS (7)
  1. PAXLOVID [Suspect]
     Active Substance: NIRMATRELVIR\RITONAVIR
     Indication: COVID-19
     Dates: start: 20220516, end: 20220520
  2. Symbicort (discontinued use during Paxlovid use) [Concomitant]
  3. COENZYME Q10 [Concomitant]
     Active Substance: DIETARY SUPPLEMENT\UBIDECARENONE
  4. VITAMINS [Concomitant]
     Active Substance: VITAMINS
  5. FISH OIL [Concomitant]
     Active Substance: FISH OIL
  6. VITAMIN D [Concomitant]
     Active Substance: VITAMIN D NOS
  7. PROBIOTICS NOS [Concomitant]
     Active Substance: PROBIOTICS NOS

REACTIONS (8)
  - Dysgeusia [None]
  - Feeling abnormal [None]
  - Headache [None]
  - Chills [None]
  - Hyperhidrosis [None]
  - Oropharyngeal pain [None]
  - SARS-CoV-2 test positive [None]
  - COVID-19 [None]

NARRATIVE: CASE EVENT DATE: 20220526
